FAERS Safety Report 25928876 (Version 1)
Quarter: 2025Q4

REPORT INFORMATION
  Report Type: Spontaneous
  Country: EU (occurrence: None)
  Receive Date: 20251016
  Receipt Date: 20251016
  Transmission Date: 20260118
  Serious: Yes (Other)
  Sender: ADIENNE PHARMA & BIOTECH
  Company Number: EU-ADIENNEP-2025AD000790

PATIENT
  Sex: Female

DRUGS (3)
  1. THIOTEPA [Suspect]
     Active Substance: THIOTEPA
     Indication: Allogenic stem cell transplantation
  2. BUSULFAN [Suspect]
     Active Substance: BUSULFAN
     Indication: Allogenic stem cell transplantation
  3. FLUDARABINE [Suspect]
     Active Substance: FLUDARABINE PHOSPHATE
     Indication: Allogenic stem cell transplantation

REACTIONS (1)
  - Graft versus host disease [Unknown]
